FAERS Safety Report 12662757 (Version 1)
Quarter: 2016Q3

REPORT INFORMATION
  Report Type: Other
  Country: JP (occurrence: JP)
  Receive Date: 20160818
  Receipt Date: 20160818
  Transmission Date: 20161109
  Serious: Yes (Hospitalization)
  Sender: FDA-Public Use
  Company Number: JP-LUPIN PHARMACEUTICALS INC.-2016-03555

PATIENT
  Age: 67 Year
  Sex: Male

DRUGS (5)
  1. RIFAMPICIN [Suspect]
     Active Substance: RIFAMPIN
     Indication: TUBERCULOSIS
     Route: 065
  2. BENIDIPINE [Interacting]
     Active Substance: BENIDIPINE
     Indication: PRINZMETAL ANGINA
     Route: 065
  3. DILTIAZEM. [Concomitant]
     Active Substance: DILTIAZEM
     Indication: PRINZMETAL ANGINA
     Route: 065
  4. NICORANDIL [Concomitant]
     Active Substance: NICORANDIL
     Indication: PRINZMETAL ANGINA
     Route: 065
  5. ISOSORBIDE DI-NITRATE [Concomitant]
     Indication: PRINZMETAL ANGINA
     Route: 065

REACTIONS (3)
  - Prinzmetal angina [Unknown]
  - Drug interaction [Unknown]
  - Condition aggravated [Unknown]
